FAERS Safety Report 7484462-1 (Version None)
Quarter: 2011Q2

REPORT INFORMATION
  Report Type: 
  Country: None (occurrence: None)
  Receive Date: 20110517
  Receipt Date: 20110509
  Transmission Date: 20111010
  Serious: Yes (Death, Hospitalization)
  Sender: FDA-Public Use
  Company Number: GB-ROXANE LABORATORIES, INC.-2011-RO-00640RO

PATIENT
  Age: 69 Year
  Sex: Male

DRUGS (4)
  1. AZATHIOPRINE [Suspect]
  2. BETA-BLOCKER [Suspect]
  3. MELPHALAN HYDROCHLORIDE [Suspect]
     Dosage: 60 MG
  4. ACETYL SALICYLIC ACID USP BAT [Suspect]

REACTIONS (3)
  - PNEUMONIA [None]
  - AUTONOMIC NERVOUS SYSTEM IMBALANCE [None]
  - MENINGITIS TUBERCULOUS [None]
